FAERS Safety Report 6018425-X (Version None)
Quarter: 2008Q4

REPORT INFORMATION
  Report Type: 
  Country: None (occurrence: None)
  Receive Date: 20081223
  Receipt Date: 20081218
  Transmission Date: 20090506
  Serious: Yes (Other)
  Sender: FDA-Public Use
  Company Number: US-WYE-H07339008

PATIENT
  Sex: Female
  Weight: 66.28 kg

DRUGS (1)
  1. PREMARIN [Suspect]
     Indication: HORMONE REPLACEMENT THERAPY
     Route: 048
     Dates: start: 20050101

REACTIONS (5)
  - ABNORMAL SENSATION IN EYE [None]
  - BRAIN NEOPLASM [None]
  - HEADACHE [None]
  - VISION BLURRED [None]
  - VISUAL FIELD DEFECT [None]
